FAERS Safety Report 5099780-4 (Version None)
Quarter: 2006Q3

REPORT INFORMATION
  Report Type: 
  Country: None (occurrence: None)
  Receive Date: 20060906
  Receipt Date: 20060823
  Transmission Date: 20061208
  Serious: Yes (Hospitalization, Other)
  Sender: FDA-Public Use
  Company Number: 2006083085

PATIENT
  Age: 54 Year
  Sex: Female
  Weight: 41 kg

DRUGS (12)
  1. SILDENAFIL CITRATE [Suspect]
     Indication: PULMONARY HYPERTENSION
     Dosage: 60 MG (20 MG, 3 IN 1 D); UNKNOWN
     Dates: start: 20060601, end: 20060709
  2. TRACLEER [Concomitant]
  3. ALL OTHER THERAPEUTIC PRODUCTS [Concomitant]
  4. BOSENTAN [Concomitant]
  5. FUROSEMIDE [Concomitant]
  6. SPIRONOLACTONE [Concomitant]
  7. FLUOXETINE [Concomitant]
  8. ACEPROMAZINE [Concomitant]
  9. BROMAZEPAM [Concomitant]
  10. PANTOPRAZOLE SODIUM [Concomitant]
  11. LEVOTHYROXINE SODIUM [Concomitant]
  12. FLUINDIONE [Concomitant]

REACTIONS (16)
  - ANGER [None]
  - ANGINA UNSTABLE [None]
  - DIARRHOEA [None]
  - EYE HAEMORRHAGE [None]
  - GENERAL PHYSICAL HEALTH DETERIORATION [None]
  - HEADACHE [None]
  - LOSS OF CONSCIOUSNESS [None]
  - MENTAL DISORDER [None]
  - MUSCLE DISORDER [None]
  - NAUSEA [None]
  - OEDEMA PERIPHERAL [None]
  - PHARMACEUTICAL PRODUCT COMPLAINT [None]
  - PROTHROMBIN LEVEL INCREASED [None]
  - THERAPY NON-RESPONDER [None]
  - VISUAL DISTURBANCE [None]
  - VOMITING [None]
